FAERS Safety Report 5712269-1 (Version None)
Quarter: 2008Q2

REPORT INFORMATION
  Report Type: 
  Country: None (occurrence: None)
  Receive Date: 20080417
  Receipt Date: 20080128
  Transmission Date: 20081010
  Serious: Yes (Other)
  Sender: FDA-Public Use
  Company Number: TRP_05643_2008

PATIENT
  Sex: Male
  Weight: 102.5129 kg

DRUGS (12)
  1. RIBAVIRIN [Suspect]
     Indication: HEPATITIS C
     Dosage: (600 MG BID ORAL), (600 MG, BID ORAL)
     Route: 048
     Dates: start: 20070412, end: 20070425
  2. RIBAVIRIN [Suspect]
     Indication: HEPATITIS C
     Dosage: (600 MG BID ORAL), (600 MG, BID ORAL)
     Route: 048
     Dates: start: 20070621, end: 20070703
  3. INFERGEN [Suspect]
     Indication: HEPATITIS C
     Dosage: 15 UG, QD, SUBCUTANEOUS
     Route: 058
     Dates: start: 20070412, end: 20070425
  4. INFERGEN [Suspect]
     Indication: HEPATITIS C
     Dosage: 15 UG, QD, SUBCUTANEOUS
     Route: 058
     Dates: start: 20070621, end: 20070703
  5. ASPIRIN [Concomitant]
  6. TOPROL-XL [Concomitant]
  7. LISINOPRIL [Concomitant]
  8. ZOLOFT [Concomitant]
  9. PLAVIX [Concomitant]
  10. AMBIEN CR [Concomitant]
  11. XANAX [Concomitant]
  12. NORVASC [Concomitant]

REACTIONS (34)
  - ASPARTATE AMINOTRANSFERASE INCREASED [None]
  - BILIRUBIN CONJUGATED INCREASED [None]
  - BLOOD CHLORIDE INCREASED [None]
  - BLOOD CHOLESTEROL DECREASED [None]
  - BLOOD CREATININE INCREASED [None]
  - BLOOD GLUCOSE INCREASED [None]
  - BLOOD IRON INCREASED [None]
  - BLOOD SODIUM DECREASED [None]
  - BLOOD TRIGLYCERIDES INCREASED [None]
  - BLOOD UREA INCREASED [None]
  - BLOOD URIC ACID INCREASED [None]
  - CARBON DIOXIDE DECREASED [None]
  - DECREASED APPETITE [None]
  - DEHYDRATION [None]
  - DIARRHOEA [None]
  - FATIGUE [None]
  - FLANK PAIN [None]
  - GAMMA-GLUTAMYLTRANSFERASE INCREASED [None]
  - GLOBULINS INCREASED [None]
  - GLOMERULAR FILTRATION RATE DECREASED [None]
  - HAEMATOCRIT DECREASED [None]
  - HAEMOGLOBIN DECREASED [None]
  - HIGH DENSITY LIPOPROTEIN DECREASED [None]
  - HYPERTENSION [None]
  - IMPAIRED WORK ABILITY [None]
  - INSOMNIA [None]
  - MEAN CELL HAEMOGLOBIN INCREASED [None]
  - NAUSEA [None]
  - PLATELET COUNT DECREASED [None]
  - RED BLOOD CELL COUNT DECREASED [None]
  - SELF-MEDICATION [None]
  - TOTAL CHOLESTEROL/HDL RATIO DECREASED [None]
  - VOMITING [None]
  - WEIGHT DECREASED [None]
